FAERS Safety Report 7438496-3 (Version None)
Quarter: 2011Q2

REPORT INFORMATION
  Report Type: 
  Country: None (occurrence: None)
  Receive Date: 20110418
  Receipt Date: 20110411
  Transmission Date: 20111010
  Serious: Yes (Life-Threatening, Other)
  Sender: FDA-Public Use
  Company Number: 2011SP016381

PATIENT

DRUGS (2)
  1. RADIOTHERAPY [Concomitant]
  2. TEMOZOLOMIDE [Suspect]
     Indication: GLIOBLASTOMA

REACTIONS (7)
  - TOXICITY TO VARIOUS AGENTS [None]
  - ARRHYTHMIA [None]
  - THROMBOSIS [None]
  - INFECTION [None]
  - MENTAL STATUS CHANGES [None]
  - NAUSEA [None]
  - BONE MARROW FAILURE [None]
